FAERS Safety Report 5779920-1 (Version None)
Quarter: 2008Q2

REPORT INFORMATION
  Report Type: 
  Country: None (occurrence: None)
  Receive Date: 20080620
  Receipt Date: 20080611
  Transmission Date: 20081010
  Serious: Yes (Hospitalization)
  Sender: FDA-Public Use
  Company Number: US-JNJFOC-20080603489

PATIENT
  Sex: Female
  Weight: 81.65 kg

DRUGS (5)
  1. DURAGESIC-100 [Suspect]
     Indication: PAIN
     Route: 062
  2. FENTANYL TRANSDERMAL SYSTEM [Suspect]
     Indication: PAIN
     Route: 062
  3. SYNTHROID [Concomitant]
     Indication: THYROID DISORDER
     Dosage: 0.88
     Route: 048
  4. PEPCID [Concomitant]
     Indication: GASTRIC DISORDER
     Dosage: AS NEEDED
  5. PRECOSE [Concomitant]
     Indication: HYPERGLYCAEMIA
     Dosage: 1/2 25MG TABLET
     Route: 048

REACTIONS (3)
  - BACK PAIN [None]
  - EXPIRED DRUG ADMINISTERED [None]
  - INTERVERTEBRAL DISC DISORDER [None]
